FAERS Safety Report 22977647 (Version 2)
Quarter: 2023Q4

REPORT INFORMATION
  Report Type: Spontaneous
  Country: GB (occurrence: GB)
  Receive Date: 20230925
  Receipt Date: 20231013
  Transmission Date: 20240110
  Serious: Yes (Death)
  Sender: FDA-Public Use
  Company Number: GB-MYLANLABS-2023M1100960

PATIENT
  Age: 67 Year
  Sex: Male

DRUGS (14)
  1. CLOZARIL [Suspect]
     Active Substance: CLOZAPINE
     Indication: Schizophrenia
     Dosage: 50 MG, 75 MG, BID
     Route: 048
     Dates: start: 20230713, end: 20230912
  2. DEVICE\XYLITOL [Concomitant]
     Active Substance: DEVICE\XYLITOL
     Indication: Dry mouth
     Dosage: UNK, TID
     Route: 061
     Dates: start: 20230905, end: 20230917
  3. BUTYLSCOPOLAMINE BROMIDE [Concomitant]
     Active Substance: BUTYLSCOPOLAMINE BROMIDE
     Indication: Salivary hypersecretion
     Dosage: 20 MILLIGRAM, PRN
     Route: 058
     Dates: start: 20230908, end: 20230918
  4. LORAZEPAM [Concomitant]
     Active Substance: LORAZEPAM
     Indication: Catatonia
     Dosage: 1 MILLIGRAM, TID
     Route: 048
     Dates: start: 202302, end: 20230905
  5. LORAZEPAM [Concomitant]
     Active Substance: LORAZEPAM
     Dosage: 1 MILLIGRAM, BID
     Route: 048
     Dates: start: 202302, end: 20230905
  6. LORAZEPAM [Concomitant]
     Active Substance: LORAZEPAM
     Dosage: 1 MILLIGRAM, QD
     Route: 048
     Dates: start: 202302, end: 20230905
  7. MIDAZOLAM HYDROCHLORIDE [Concomitant]
     Active Substance: MIDAZOLAM HYDROCHLORIDE
     Indication: Anticipatory anxiety
     Dosage: 10 MILLIGRAM, QD
     Route: 058
     Dates: start: 20230916, end: 20230917
  8. OXYCODONE HYDROCHLORIDE [Concomitant]
     Active Substance: OXYCODONE HYDROCHLORIDE
     Indication: Anticipatory anxiety
     Dosage: 6 MILLIGRAM, QD
     Route: 058
     Dates: start: 20230917, end: 20230917
  9. SENNOSIDES A AND B [Concomitant]
     Active Substance: SENNOSIDES A AND B
     Indication: Constipation
     Dosage: 15 MILLIGRAM
     Route: 048
     Dates: start: 20230905, end: 20230911
  10. AMOXICILLIN [Concomitant]
     Active Substance: AMOXICILLIN
     Indication: Pneumonia
     Dosage: 500 MILLIGRAM, TID
     Route: 048
     Dates: start: 20230905, end: 20230910
  11. ATORVASTATIN CALCIUM [Concomitant]
     Active Substance: ATORVASTATIN CALCIUM
     Indication: Hypercholesterolaemia
     Dosage: 40 MILLIGRAM
     Route: 048
     Dates: start: 20230728, end: 20230905
  12. CHOLECALCIFEROL [Concomitant]
     Active Substance: CHOLECALCIFEROL
     Indication: Vitamin D deficiency
     Dosage: 800 INTERNATIONAL UNIT
     Route: 048
     Dates: start: 20230731, end: 20230905
  13. DALTEPARIN [Concomitant]
     Active Substance: DALTEPARIN
     Indication: Thrombosis prophylaxis
     Dosage: 5000 INTERNATIONAL UNIT, QD
     Route: 058
     Dates: start: 20230724, end: 20230905
  14. MOMETASONE [Concomitant]
     Active Substance: MOMETASONE
     Indication: Eczema
     Dosage: UNK, BIWEEKLY
     Route: 061
     Dates: start: 20230710, end: 20230905

REACTIONS (3)
  - Death [Fatal]
  - Urinary tract infection [Unknown]
  - Sedation complication [Unknown]

NARRATIVE: CASE EVENT DATE: 20230918
